FAERS Safety Report 6219945-5 (Version None)
Quarter: 2009Q2

REPORT INFORMATION
  Report Type: 
  Country: None (occurrence: None)
  Receive Date: 20090609
  Receipt Date: 20090313
  Transmission Date: 20091009
  Serious: No
  Sender: FDA-Public Use
  Company Number: US-BAYER-200917613NA

PATIENT
  Age: 47 Year
  Sex: Female
  Weight: 132 kg

DRUGS (1)
  1. ULTRAVIST 370 [Suspect]
     Indication: COMPUTERISED TOMOGRAM THORAX
     Dosage: TOTAL DAILY DOSE: 120 ML  UNIT DOSE: 500 ML
     Route: 042
     Dates: start: 20090313, end: 20090313

REACTIONS (2)
  - PRURITUS [None]
  - URTICARIA [None]
